FAERS Safety Report 15950009 (Version 1)
Quarter: 2019Q1

REPORT INFORMATION
  Report Type: Spontaneous
  Country: IT (occurrence: IT)
  Receive Date: 20190211
  Receipt Date: 20190211
  Transmission Date: 20190417
  Serious: Yes (Hospitalization)
  Sender: FDA-Public Use
  Company Number: IT-TEVA-2019-IT-1008856

PATIENT
  Age: 77 Year
  Sex: Male

DRUGS (5)
  1. CONGESCOR [Concomitant]
     Active Substance: BISOPROLOL
  2. TRIATEC [Concomitant]
  3. TORVAST [Concomitant]
     Active Substance: ATORVASTATIN
  4. CLOPIDOGREL [Suspect]
     Active Substance: CLOPIDOGREL BISULFATE
     Indication: CORONARY ANGIOPLASTY
     Dosage: 75 MILLIGRAM DAILY;
     Route: 048
     Dates: start: 20181207, end: 20190120
  5. CARDIOASPIRIN [Suspect]
     Active Substance: ASPIRIN
     Indication: CORONARY ANGIOPLASTY
     Dosage: 100 MILLIGRAM DAILY;
     Route: 048
     Dates: start: 20170101, end: 20190120

REACTIONS (1)
  - Rectal haemorrhage [Unknown]

NARRATIVE: CASE EVENT DATE: 20190120
